FAERS Safety Report 4364336-5 (Version None)
Quarter: 2004Q2

REPORT INFORMATION
  Report Type: 
  Country: None (occurrence: None)
  Receive Date: 20040525
  Receipt Date: 20031110
  Transmission Date: 20050107
  Serious: Yes (Other)
  Sender: FDA-Public Use
  Company Number: US-BRISTOL-MYERS SQUIBB COMPANY-12431854

PATIENT
  Age: 70 Year
  Sex: Male

DRUGS (6)
  1. CYTOXAN [Suspect]
  2. ETOPOSIDE [Concomitant]
  3. ONCOVIN [Concomitant]
  4. PREDNISONE [Concomitant]
  5. DOXORUBICIN HCL [Concomitant]
  6. THALIDOMIDE [Concomitant]

REACTIONS (3)
  - LEUKOPENIA [None]
  - PYREXIA [None]
  - UROSEPSIS [None]
